FAERS Safety Report 8407171-0 (Version None)
Quarter: 2012Q2

REPORT INFORMATION
  Report Type: 
  Country: None (occurrence: None)
  Receive Date: 20120604
  Receipt Date: 20120528
  Transmission Date: 20120825
  Serious: Yes (Other)
  Sender: FDA-Public Use
  Company Number: BR-ROCHE-1073081

PATIENT
  Sex: Male
  Weight: 100 kg

DRUGS (2)
  1. VENLAFAXINE [Concomitant]
     Indication: DEPRESSION
     Route: 048
  2. VALIUM [Suspect]
     Indication: DEPRESSION
     Route: 048

REACTIONS (1)
  - EYE HAEMORRHAGE [None]
